FAERS Safety Report 8325538-6 (Version None)
Quarter: 2012Q2

REPORT INFORMATION
  Report Type: 
  Country: None (occurrence: None)
  Receive Date: 20120501
  Receipt Date: 20120418
  Transmission Date: 20120825
  Serious: Yes (Life-Threatening, Hospitalization)
  Sender: FDA-Public Use
  Company Number: CN-JNJFOC-20110609007

PATIENT
  Sex: Male

DRUGS (2)
  1. REMICADE [Suspect]
     Dosage: WEEK 0
     Route: 042
     Dates: start: 20110603
  2. REMICADE [Suspect]
     Indication: CROHN'S DISEASE
     Dosage: WEEK 2  DOSE INTERVAL: 14
     Route: 042
     Dates: start: 20110617

REACTIONS (5)
  - CHEST DISCOMFORT [None]
  - LARYNX IRRITATION [None]
  - INFUSION RELATED REACTION [None]
  - RASH [None]
  - DYSPNOEA [None]
